FAERS Safety Report 25310365 (Version 1)
Quarter: 2025Q2

REPORT INFORMATION
  Report Type: Spontaneous
  Country: US (occurrence: US)
  Receive Date: 20250514
  Receipt Date: 20250514
  Transmission Date: 20250716
  Serious: Yes (Other)
  Sender: COOPERSURGICAL
  Company Number: US-COOPERSURGICAL, INC.-2025CPS003648

PATIENT
  Age: 27 Year
  Sex: Female
  Weight: 63.492 kg

DRUGS (1)
  1. PARAGARD T 380A [Suspect]
     Active Substance: COPPER
     Indication: Contraception
     Route: 015
     Dates: start: 20130125

REACTIONS (14)
  - Reproductive complication associated with device [Unknown]
  - Perinatal depression [Recovered/Resolved]
  - Device breakage [Recovered/Resolved]
  - Foreign body in urogenital tract [Recovered/Resolved]
  - Complication of device removal [Recovered/Resolved]
  - Pregnancy with contraceptive device [Recovered/Resolved]
  - Drug ineffective [Unknown]
  - Psychological trauma [Unknown]
  - Anxiety [Unknown]
  - Menstrual disorder [Unknown]
  - Post-traumatic stress disorder [Not Recovered/Not Resolved]
  - Depression [Unknown]
  - Sexual dysfunction [Unknown]
  - Emotional disorder [Unknown]

NARRATIVE: CASE EVENT DATE: 20171001
